FAERS Safety Report 6734523-7 (Version None)
Quarter: 2010Q2

REPORT INFORMATION
  Report Type: 
  Country: None (occurrence: None)
  Receive Date: 20100520
  Receipt Date: 20100507
  Transmission Date: 20101027
  Serious: Yes (Hospitalization)
  Sender: FDA-Public Use
  Company Number: US-ELI_LILLY_AND_COMPANY-US201005002905

PATIENT
  Age: 77 Year
  Sex: Female

DRUGS (10)
  1. FORTEO [Suspect]
     Indication: OSTEOPOROSIS
     Dosage: 20 UG, DAILY (1/D)
     Dates: start: 20090801
  2. SYNTHROID [Concomitant]
  3. OXYBUTIN [Concomitant]
  4. MULTI-VITAMIN [Concomitant]
  5. VOLTAREN [Concomitant]
  6. CALCIUM [Concomitant]
  7. VALIUM [Concomitant]
  8. SIMVASTATIN [Concomitant]
  9. ASPIRIN [Concomitant]
  10. DARVOCET [Concomitant]

REACTIONS (3)
  - CARDIAC PACEMAKER INSERTION [None]
  - HYPOAESTHESIA [None]
  - SENSATION OF FOREIGN BODY [None]
